FAERS Safety Report 11286098 (Version 3)
Quarter: 2015Q3

REPORT INFORMATION
  Report Type: Report from Study
  Country: US (occurrence: US)
  Receive Date: 20150721
  Receipt Date: 20150902
  Transmission Date: 20151125
  Serious: No
  Sender: FDA-Public Use
  Company Number: US-AMGEN-USASP2015070620

PATIENT
  Age: 49 Year
  Sex: Female

DRUGS (2)
  1. ENBREL [Suspect]
     Active Substance: ETANERCEPT
     Indication: PSORIATIC ARTHROPATHY
     Dosage: UNK, QWK
     Route: 065
     Dates: start: 2014, end: 201507
  2. PREDNISONE. [Suspect]
     Active Substance: PREDNISONE
     Indication: PRODUCT USED FOR UNKNOWN INDICATION
     Dosage: UNK
     Route: 065
     Dates: start: 20150608

REACTIONS (11)
  - Temporomandibular joint syndrome [Unknown]
  - Dry skin [Recovered/Resolved]
  - Tooth loss [Unknown]
  - Eye disorder [Unknown]
  - Device issue [Unknown]
  - Swelling face [Recovered/Resolved]
  - Device failure [Unknown]
  - Device colour issue [Unknown]
  - Drug dose omission [Unknown]
  - Williams syndrome [Unknown]
  - Arthralgia [Recovering/Resolving]

NARRATIVE: CASE EVENT DATE: 20150608
